FAERS Safety Report 25908321 (Version 1)
Quarter: 2025Q4

REPORT INFORMATION
  Report Type: Spontaneous
  Country: US (occurrence: US)
  Receive Date: 20251010
  Receipt Date: 20251010
  Transmission Date: 20260117
  Serious: No
  Sender: SPROUT PHARMACEUTICALS
  Company Number: US-Sprout Pharmaceuticals, Inc.-2025SP000039

PATIENT

DRUGS (4)
  1. ADDYI [Suspect]
     Active Substance: FLIBANSERIN
     Indication: Product used for unknown indication
     Dosage: RX # 8004223, 100 MILLIGRAM
     Route: 048
  2. MAGNESIUM [Concomitant]
     Active Substance: MAGNESIUM
     Indication: Mineral supplementation
  3. Omega [Concomitant]
     Indication: Product used for unknown indication
  4. ESTROGENS\PROGESTERONE [Concomitant]
     Active Substance: ESTROGENS\PROGESTERONE
     Indication: Product used for unknown indication

REACTIONS (4)
  - Feeling abnormal [Unknown]
  - Lethargy [Recovered/Resolved]
  - Product use in unapproved indication [Recovered/Resolved]
  - Fatigue [Recovered/Resolved]
